FAERS Safety Report 17181466 (Version 1)
Quarter: 2019Q4

REPORT INFORMATION
  Report Type: Spontaneous
  Country: US (occurrence: US)
  Receive Date: 20191220
  Receipt Date: 20191220
  Transmission Date: 20200122
  Serious: No
  Sender: FDA-Public Use
  Company Number: US-CELGENEUS-USA-20191205550

PATIENT
  Age: 57 Year
  Sex: Female

DRUGS (2)
  1. OTEZLA [Suspect]
     Active Substance: APREMILAST
     Indication: SKIN EXFOLIATION
     Dosage: 60 MILLIGRAM
     Route: 048
     Dates: start: 201906, end: 201907
  2. OTEZLA [Suspect]
     Active Substance: APREMILAST
     Indication: OFF LABEL USE
     Dosage: 60 MILLIGRAM
     Route: 048
     Dates: start: 201908

REACTIONS (3)
  - Facial pain [Unknown]
  - Toothache [Unknown]
  - Rhinalgia [Unknown]

NARRATIVE: CASE EVENT DATE: 20191208
